FAERS Safety Report 9204917 (Version 1)
Quarter: 2013Q2

REPORT INFORMATION
  Report Type: Report from Study
  Country: VE (occurrence: VE)
  Receive Date: 20130402
  Receipt Date: 20130405
  Transmission Date: 20140414
  Serious: Yes (Other)
  Sender: FDA-Public Use
  Company Number: VE-ABBOTT-13P-178-1069256-00

PATIENT
  Sex: Male
  Weight: 85 kg

DRUGS (2)
  1. HUMIRA [Suspect]
     Indication: RHEUMATOID ARTHRITIS
     Route: 058
     Dates: start: 20100322, end: 2012
  2. ANTI-TB MEDICATIONS [Suspect]
     Indication: ANTIBIOTIC PROPHYLAXIS

REACTIONS (2)
  - Tuberculin test positive [Unknown]
  - Toxicity to various agents [Unknown]
